FAERS Safety Report 13207646 (Version 1)
Quarter: 2017Q1

REPORT INFORMATION
  Report Type: Report from Study
  Country: US (occurrence: US)
  Receive Date: 20170209
  Receipt Date: 20170209
  Transmission Date: 20170428
  Serious: Yes (Disabling)
  Sender: FDA-Public Use
  Company Number: PHEH2017US003513

PATIENT
  Sex: Female

DRUGS (1)
  1. GLEEVEC [Suspect]
     Active Substance: IMATINIB MESYLATE
     Indication: LEUKAEMIA
     Dosage: FOR TWO YEARS
     Route: 065

REACTIONS (5)
  - Diarrhoea [Unknown]
  - Back disorder [Unknown]
  - Myalgia [Unknown]
  - Nausea [Unknown]
  - Depression [Unknown]
